FAERS Safety Report 4513421-3 (Version None)
Quarter: 2004Q4

REPORT INFORMATION
  Report Type: 
  Country: None (occurrence: None)
  Receive Date: 20041124
  Receipt Date: 20041109
  Transmission Date: 20050328
  Serious: Yes (Death)
  Sender: FDA-Public Use
  Company Number: D01200300739

PATIENT
  Age: 76 Year
  Sex: Male

DRUGS (2)
  1. ALFUZOSIN - TABLET 10 MG [Suspect]
     Indication: URINARY RETENTION
     Dosage: 10 MG OD
     Route: 048
     Dates: start: 20030603, end: 20030603
  2. CIPROFLOXACIN [Concomitant]

REACTIONS (12)
  - BLOOD PRESSURE DECREASED [None]
  - CARDIAC FAILURE [None]
  - CIRCULATORY COLLAPSE [None]
  - CORONARY ARTERY ATHEROSCLEROSIS [None]
  - FALL [None]
  - HYPERTENSION [None]
  - LUNG DISORDER [None]
  - MYOCARDIAL FIBROSIS [None]
  - MYOCARDIAL ISCHAEMIA [None]
  - POLYURIA [None]
  - PROSTATE CANCER [None]
  - PYELONEPHRITIS CHRONIC [None]
